FAERS Safety Report 25305451 (Version 1)
Quarter: 2025Q2

REPORT INFORMATION
  Report Type: Spontaneous
  Country: CH (occurrence: CH)
  Receive Date: 20250513
  Receipt Date: 20250513
  Transmission Date: 20250716
  Serious: No
  Sender: CSL BEHRING
  Company Number: CH-BEH-2025204308

PATIENT
  Sex: Male

DRUGS (1)
  1. DIFELIKEFALIN ACETATE [Suspect]
     Active Substance: DIFELIKEFALIN ACETATE
     Indication: Product used for unknown indication
     Route: 042

REACTIONS (1)
  - Death [Fatal]
